FAERS Safety Report 6539486-5 (Version None)
Quarter: 2010Q1

REPORT INFORMATION
  Report Type: 
  Country: None (occurrence: None)
  Receive Date: 20100115
  Receipt Date: 20090913
  Transmission Date: 20100710
  Serious: Yes (Hospitalization)
  Sender: FDA-Public Use
  Company Number: A0839087A

PATIENT
  Age: 47 Year
  Sex: Male
  Weight: 66.8 kg

DRUGS (6)
  1. PAZOPANIB [Suspect]
     Indication: SARCOMA
     Dosage: 600MG PER DAY
     Route: 048
     Dates: start: 20090708
  2. ALLEGRA [Concomitant]
     Indication: SINUS DISORDER
     Dosage: 180MG PER DAY
     Route: 048
  3. ASPIRIN [Concomitant]
     Dosage: 81MG PER DAY
     Route: 048
  4. MULTI-VITAMIN [Concomitant]
     Route: 048
  5. NORVASC [Concomitant]
     Indication: HYPERTENSION
     Dosage: 10MG PER DAY
     Route: 048
     Dates: start: 20090730
  6. TENORETIC 100 [Concomitant]
     Indication: HYPERTENSION
     Route: 048

REACTIONS (2)
  - COUGH [None]
  - PNEUMOTHORAX [None]
